FAERS Safety Report 8964134 (Version 1)
Quarter: 2012Q4

REPORT INFORMATION
  Report Type: 
  Country: US (occurrence: US)
  Receive Date: 20121214
  Receipt Date: 20121214
  Transmission Date: 20130627
  Serious: No
  Sender: FDA-Public Use
  Company Number: US-PFIZER INC-2012316173

PATIENT
  Age: 38 Year
  Sex: Female
  Weight: 72.56 kg

DRUGS (7)
  1. LYRICA [Suspect]
     Indication: FIBROMYALGIA
     Dosage: 150 mg, 2x/day
     Route: 048
     Dates: start: 201205, end: 201210
  2. LYRICA [Suspect]
     Dosage: 100 mg, 2x/day
     Route: 048
     Dates: start: 201211
  3. LYRICA [Suspect]
     Dosage: 100 mg, 2x/day
     Route: 048
     Dates: start: 201212
  4. CYMBALTA [Concomitant]
     Dosage: 120 mg, 1x/day
  5. CLONAZEPAM [Concomitant]
     Dosage: 1 mg, 3x/day
  6. OXYCODONE [Concomitant]
     Dosage: 10/325 mg every four hours
  7. WARFARIN [Concomitant]
     Dosage: UNK

REACTIONS (2)
  - Joint swelling [Not Recovered/Not Resolved]
  - Oedema peripheral [Unknown]
